FAERS Safety Report 5518037-8 (Version None)
Quarter: 2007Q4

REPORT INFORMATION
  Report Type: 
  Country: None (occurrence: None)
  Receive Date: 20071113
  Receipt Date: 20071113
  Transmission Date: 20080405
  Serious: Yes (Disabling, Other)
  Sender: FDA-Public Use
  Company Number: None

PATIENT
  Age: 49 Year
  Sex: Female
  Weight: 56.246 kg

DRUGS (1)
  1. VISINE PURE TEARS SINGLE-DROP   GLYCERIN 0.2%, HYPROM 0.2%, ETC  PHIZE [Suspect]
     Indication: DRY EYE
     Dosage: 1 - 2 DROPS IN AFFECTED EYE[S] AS NEEDED  INTRAOCULAR
     Route: 031
     Dates: start: 20071018, end: 20071018

REACTIONS (5)
  - BLINDNESS UNILATERAL [None]
  - EYE IRRITATION [None]
  - EYE PAIN [None]
  - EYELID OEDEMA [None]
  - INSTILLATION SITE PAIN [None]
